FAERS Safety Report 20621707 (Version 1)
Quarter: 2022Q1

REPORT INFORMATION
  Report Type: Spontaneous
  Country: PR (occurrence: None)
  Receive Date: 20220321
  Receipt Date: 20220321
  Transmission Date: 20220423
  Serious: Yes (Hospitalization)
  Sender: FDA-Public Use
  Company Number: None

PATIENT
  Age: 73 Year
  Sex: Male

DRUGS (1)
  1. NEXAVAR [Suspect]
     Active Substance: SORAFENIB
     Indication: Hepatic cancer
     Dosage: FREQUENCY : TWICE A DAY;?
     Route: 048
     Dates: start: 20220222, end: 20220228

REACTIONS (5)
  - Oral pain [None]
  - Dysphagia [None]
  - Oral discomfort [None]
  - Burning sensation [None]
  - Burning sensation [None]

NARRATIVE: CASE EVENT DATE: 20220301
